FAERS Safety Report 7596243-9 (Version None)
Quarter: 2011Q3

REPORT INFORMATION
  Report Type: 
  Country: None (occurrence: None)
  Receive Date: 20110707
  Receipt Date: 20110701
  Transmission Date: 20111222
  Serious: Yes (Other)
  Sender: FDA-Public Use
  Company Number: SE-PFIZER INC-2011095351

PATIENT
  Age: 64 Year
  Sex: Female

DRUGS (5)
  1. CORTISONE [Concomitant]
     Dosage: UNK
  2. LEVOTHYROXINE SODIUM [Concomitant]
     Dosage: UNK
  3. PULMICORT [Concomitant]
     Dosage: UNK
  4. ZOLOFT [Suspect]
     Indication: DEPRESSION
     Dosage: 50 MG, 1X/DAY
  5. ZOLOFT [Suspect]
     Indication: ANXIETY
     Dosage: 50 MG, 2X/DAY
     Dates: start: 20010101

REACTIONS (8)
  - VASCULITIS [None]
  - RASH [None]
  - PLATELET COUNT DECREASED [None]
  - SPLENOMEGALY [None]
  - PHOTOSENSITIVITY REACTION [None]
  - HEPATITIS C [None]
  - INCONTINENCE [None]
  - MUSCLE TWITCHING [None]
